FAERS Safety Report 10221650 (Version 1)
Quarter: 2014Q2

REPORT INFORMATION
  Report Type: Spontaneous
  Country: SE (occurrence: SE)
  Receive Date: 20140606
  Receipt Date: 20140606
  Transmission Date: 20141212
  Serious: Yes (Other)
  Sender: FDA-Public Use
  Company Number: SE-PFIZER INC-2014151124

PATIENT
  Age: 60 Year
  Sex: Female

DRUGS (3)
  1. DETRUSITOL SR [Suspect]
     Dosage: 2 MG, 1X/DAY
     Dates: start: 20110317, end: 20140526
  2. GILENYA [Suspect]
     Dosage: 0.5 MG, DAILY
     Dates: start: 20121214, end: 20140408
  3. SAROTEN [Suspect]
     Dosage: 10 MG, DAILY
     Dates: start: 20110111, end: 20140408

REACTIONS (4)
  - Congestive cardiomyopathy [Not Recovered/Not Resolved]
  - Dyspnoea [Not Recovered/Not Resolved]
  - Bundle branch block left [Not Recovered/Not Resolved]
  - Chest discomfort [Not Recovered/Not Resolved]
